FAERS Safety Report 8774172 (Version 1)
Quarter: 2012Q4

REPORT INFORMATION
  Report Type: 
  Country: US (occurrence: US)
  Receive Date: 20120907
  Receipt Date: 20120907
  Transmission Date: 20130627
  Serious: Yes (Hospitalization)
  Sender: FDA-Public Use
  Company Number: US-JNJFOC-20120900309

PATIENT
  Age: 65 Year
  Sex: Female

DRUGS (3)
  1. LEVAQUIN [Suspect]
     Indication: BRONCHITIS
     Route: 048
  2. LEVAQUIN [Suspect]
     Indication: SINUSITIS
     Route: 048
  3. PREDNISONE [Suspect]
     Indication: SINUSITIS
     Route: 065

REACTIONS (5)
  - Rotator cuff syndrome [Recovering/Resolving]
  - Trigger finger [Unknown]
  - Tendon rupture [Recovered/Resolved]
  - Rotator cuff syndrome [Recovering/Resolving]
  - Tendonitis [Recovered/Resolved]
